FAERS Safety Report 21903728 (Version 6)
Quarter: 2025Q1

REPORT INFORMATION
  Report Type: Spontaneous
  Country: US (occurrence: US)
  Receive Date: 20230124
  Receipt Date: 20250227
  Transmission Date: 20250409
  Serious: Yes (Hospitalization)
  Sender: SANOFI AVENTIS
  Company Number: US-SA-SAC20230123001452

PATIENT
  Age: 58 Year
  Sex: Female
  Weight: 103 kg

DRUGS (2)
  1. DUPIXENT [Suspect]
     Active Substance: DUPILUMAB
     Indication: Asthma
     Dosage: 300 MG, QOW
     Route: 058
     Dates: start: 20200222
  2. DILTIAZEM [Concomitant]
     Active Substance: DILTIAZEM
     Route: 065

REACTIONS (8)
  - Dyspnoea [Unknown]
  - Cardiac disorder [Unknown]
  - Chest pain [Recovered/Resolved]
  - Asthma [Unknown]
  - Impaired quality of life [Unknown]
  - Bronchitis [Unknown]
  - Asthma [Unknown]
  - Drug ineffective [Unknown]

NARRATIVE: CASE EVENT DATE: 20230101
